FAERS Safety Report 14983031 (Version 1)
Quarter: 2018Q2

REPORT INFORMATION
  Report Type: Spontaneous
  Country: FR (occurrence: FR)
  Receive Date: 20180607
  Receipt Date: 20180607
  Transmission Date: 20180711
  Serious: Yes (Other)
  Sender: FDA-Public Use
  Company Number: FR-TEVA-2018-FR-900066

PATIENT
  Age: 62 Year
  Sex: Male

DRUGS (2)
  1. USTEKINUMAB [Suspect]
     Active Substance: USTEKINUMAB
     Indication: PSORIASIS
     Dosage: FIRST INJECTION AT WEEKS 0 AND 4, THIRD INJECTION AT WEEK 16, FOURTH INJECTION (45MG) AT WEEK 28.
     Route: 058
  2. METHOTREXATE. [Suspect]
     Active Substance: METHOTREXATE
     Indication: PSORIASIS
     Route: 065

REACTIONS (2)
  - Treatment failure [Unknown]
  - Cutaneous leishmaniasis [Recovering/Resolving]
